FAERS Safety Report 26126305 (Version 1)
Quarter: 2025Q4

REPORT INFORMATION
  Report Type: Spontaneous
  Country: CN (occurrence: CN)
  Receive Date: 20251205
  Receipt Date: 20251205
  Transmission Date: 20260117
  Serious: Yes (Hospitalization, Other)
  Sender: BAXTER
  Company Number: None

PATIENT
  Age: 45 Year
  Sex: Male
  Weight: 67.6 kg

DRUGS (4)
  1. CYCLOPHOSPHAMIDE [Suspect]
     Active Substance: CYCLOPHOSPHAMIDE
     Indication: Hepatic cancer
     Dosage: 0.36 G, QD
     Route: 041
     Dates: start: 20251031, end: 20251031
  2. SODIUM CHLORIDE [Suspect]
     Active Substance: SODIUM CHLORIDE
     Dosage: 500 ML, QD WITH CYCLOPHOSPHAMIDE
     Route: 041
     Dates: start: 20251031, end: 20251031
  3. SODIUM CHLORIDE [Suspect]
     Active Substance: SODIUM CHLORIDE
     Dosage: 100 ML, QD WITH PACLITAXEL
     Route: 041
     Dates: start: 20251031, end: 20251031
  4. PACLITAXEL [Suspect]
     Active Substance: PACLITAXEL
     Indication: Hepatic cancer
     Dosage: 100 MG, QD
     Route: 041
     Dates: start: 20251031, end: 20251031

REACTIONS (1)
  - Myelosuppression [Recovering/Resolving]

NARRATIVE: CASE EVENT DATE: 20251117
